FAERS Safety Report 7060040-3 (Version None)
Quarter: 2010Q4

REPORT INFORMATION
  Report Type: 
  Country: None (occurrence: None)
  Receive Date: 20101025
  Receipt Date: 20100112
  Transmission Date: 20110411
  Serious: No
  Sender: FDA-Public Use
  Company Number: US-BRISTOL-MYERS SQUIBB COMPANY-14931414

PATIENT
  Age: 22 Year
  Sex: Female

DRUGS (1)
  1. BUSPAR [Suspect]
     Indication: ANXIETY

REACTIONS (1)
  - PREGNANCY [None]
